FAERS Safety Report 20965603 (Version 1)
Quarter: 2022Q2

REPORT INFORMATION
  Report Type: Report from Study
  Country: US (occurrence: US)
  Receive Date: 20220616
  Receipt Date: 20220616
  Transmission Date: 20220720
  Serious: Yes (Hospitalization)
  Sender: FDA-Public Use
  Company Number: US-JNJFOC-20220624453

PATIENT
  Age: 46 Year
  Sex: Male
  Weight: 70.8 kg

DRUGS (2)
  1. TRABECTEDIN [Suspect]
     Active Substance: TRABECTEDIN
     Indication: Ewing^s sarcoma metastatic
     Route: 042
     Dates: start: 20220524, end: 20220524
  2. IRINOTECAN [Suspect]
     Active Substance: IRINOTECAN
     Indication: Ewing^s sarcoma metastatic
     Route: 042
     Dates: start: 20220525, end: 20220527

REACTIONS (2)
  - Device related infection [Unknown]
  - Pneumonia [Unknown]

NARRATIVE: CASE EVENT DATE: 20220604
